FAERS Safety Report 25139955 (Version 1)
Quarter: 2025Q1

REPORT INFORMATION
  Report Type: Spontaneous
  Country: PT (occurrence: PT)
  Receive Date: 20250331
  Receipt Date: 20250331
  Transmission Date: 20250409
  Serious: Yes (Disabling)
  Sender: MYLAN
  Company Number: None

PATIENT
  Age: 24 Year
  Sex: Male
  Weight: 58 kg

DRUGS (8)
  1. SERTRALINE [Suspect]
     Active Substance: SERTRALINE HYDROCHLORIDE
     Indication: Major depression
     Dosage: 50 MILLIGRAM, BID (12 HR, 50MG, 1X DAY, 1X NIGHT)
     Dates: start: 20140616, end: 20170410
  2. SERTRALINE [Suspect]
     Active Substance: SERTRALINE HYDROCHLORIDE
     Dosage: 50 MILLIGRAM, BID (12 HR, 50MG, 1X DAY, 1X NIGHT)
     Route: 048
     Dates: start: 20140616, end: 20170410
  3. SERTRALINE [Suspect]
     Active Substance: SERTRALINE HYDROCHLORIDE
     Dosage: 50 MILLIGRAM, BID (12 HR, 50MG, 1X DAY, 1X NIGHT)
     Route: 048
     Dates: start: 20140616, end: 20170410
  4. SERTRALINE [Suspect]
     Active Substance: SERTRALINE HYDROCHLORIDE
     Dosage: 50 MILLIGRAM, BID (12 HR, 50MG, 1X DAY, 1X NIGHT)
     Dates: start: 20140616, end: 20170410
  5. SULPIRIDE [Concomitant]
     Active Substance: SULPIRIDE
  6. SULPIRIDE [Concomitant]
     Active Substance: SULPIRIDE
     Route: 048
  7. SULPIRIDE [Concomitant]
     Active Substance: SULPIRIDE
     Route: 048
  8. SULPIRIDE [Concomitant]
     Active Substance: SULPIRIDE

REACTIONS (5)
  - Hypomania [Recovered/Resolved]
  - Mood altered [Recovered/Resolved]
  - Sexual dysfunction [Recovered/Resolved]
  - Weight increased [Recovered/Resolved]
  - Alopecia [Recovering/Resolving]

NARRATIVE: CASE EVENT DATE: 20140616
